FAERS Safety Report 4487557-X (Version None)
Quarter: 2004Q4

REPORT INFORMATION
  Report Type: 
  Country: None (occurrence: None)
  Receive Date: 20041028
  Receipt Date: 20041018
  Transmission Date: 20050328
  Serious: Yes (Hospitalization)
  Sender: FDA-Public Use
  Company Number: GB-JNJFOC-20041005244

PATIENT
  Sex: Female

DRUGS (12)
  1. REMICADE [Suspect]
     Indication: RHEUMATOID ARTHRITIS
     Route: 042
  2. DIANETTE [Concomitant]
  3. DIANETTE [Concomitant]
  4. METHOTREXATE [Concomitant]
  5. PREDNISOLONE [Concomitant]
  6. VOLTAREN [Concomitant]
  7. BENDROFLUAZIDE [Concomitant]
  8. FOLIC ACID [Concomitant]
  9. MICARDIS [Concomitant]
  10. FOSAMAX [Concomitant]
  11. FLUOXETINE [Concomitant]
  12. FERROGRAD [Concomitant]

REACTIONS (1)
  - GASTRIC ULCER HAEMORRHAGE [None]
